FAERS Safety Report 6996467-5 (Version None)
Quarter: 2010Q3

REPORT INFORMATION
  Report Type: 
  Country: None (occurrence: None)
  Receive Date: 20100918
  Receipt Date: 20090225
  Transmission Date: 20110219
  Serious: No
  Sender: FDA-Public Use
  Company Number: US-WYE-H08370509

PATIENT
  Sex: Female
  Weight: 52.21 kg

DRUGS (1)
  1. PREMPRO [Suspect]
     Indication: HORMONE REPLACEMENT THERAPY
     Route: 048
     Dates: start: 20081201

REACTIONS (4)
  - BREAST TENDERNESS [None]
  - BURNING SENSATION [None]
  - DYSMENORRHOEA [None]
  - MENORRHAGIA [None]
